FAERS Safety Report 13922163 (Version 2)
Quarter: 2017Q3

REPORT INFORMATION
  Report Type: Spontaneous
  Country: BR (occurrence: BR)
  Receive Date: 20170830
  Receipt Date: 20170920
  Transmission Date: 20171127
  Serious: Yes (Hospitalization)
  Sender: FDA-Public Use
  Company Number: BR-SA-2017SA126913

PATIENT
  Age: 15 Year
  Sex: Female
  Weight: 53 kg

DRUGS (8)
  1. LANTUS SOLOSTAR [Suspect]
     Active Substance: INSULIN GLARGINE
     Indication: DIABETES MELLITUS
     Route: 051
     Dates: start: 2014
  2. APIDRA SOLOSTAR [Suspect]
     Active Substance: INSULIN GLULISINE
     Indication: DIABETES MELLITUS
     Route: 058
     Dates: start: 201703, end: 201703
  3. LANTUS SOLOSTAR [Suspect]
     Active Substance: INSULIN GLARGINE
     Indication: DIABETES MELLITUS
     Route: 051
     Dates: end: 201703
  4. SOLOSTAR [Suspect]
     Active Substance: DEVICE
     Indication: DIABETES MELLITUS
     Dates: start: 2014
  5. APIDRA SOLOSTAR [Suspect]
     Active Substance: INSULIN GLULISINE
     Indication: DIABETES MELLITUS
     Dosage: DOSE- VARIED ACCORDING TO CARBOHYDRATE COUNTING
     Route: 058
     Dates: start: 2014, end: 201703
  6. SOLOSTAR [Suspect]
     Active Substance: DEVICE
     Indication: DIABETES MELLITUS
     Dates: end: 201703
  7. SOLOSTAR [Suspect]
     Active Substance: DEVICE
     Indication: DIABETES MELLITUS
     Dates: start: 2014, end: 201703
  8. SOLOSTAR [Suspect]
     Active Substance: DEVICE
     Indication: DIABETES MELLITUS
     Dosage: DOSE- 22IU
     Dates: start: 201703, end: 201703

REACTIONS (6)
  - Glycosylated haemoglobin increased [Recovering/Resolving]
  - Nephrolithiasis [Unknown]
  - Device use issue [Unknown]
  - Blood glucose increased [Recovered/Resolved]
  - Wrong drug administered [Unknown]
  - Hypoglycaemia [Recovering/Resolving]

NARRATIVE: CASE EVENT DATE: 201703
